FAERS Safety Report 19138310 (Version 1)
Quarter: 2021Q2

REPORT INFORMATION
  Report Type: Spontaneous
  Country: HR (occurrence: HR)
  Receive Date: 20210415
  Receipt Date: 20210415
  Transmission Date: 20210717
  Serious: Yes (Death)
  Sender: FDA-Public Use
  Company Number: HR-JNJFOC-20210422383

PATIENT

DRUGS (1)
  1. DARZALEX [Suspect]
     Active Substance: DARATUMUMAB
     Indication: PRODUCT USED FOR UNKNOWN INDICATION
     Route: 042

REACTIONS (1)
  - COVID-19 [Fatal]
